FAERS Safety Report 25421379 (Version 2)
Quarter: 2025Q3

REPORT INFORMATION
  Report Type: Report from Study
  Country: CA (occurrence: CA)
  Receive Date: 20250611
  Receipt Date: 20250911
  Transmission Date: 20251020
  Serious: Yes (Other)
  Sender: ROCHE
  Company Number: CA-ROCHE-10000301896

PATIENT
  Sex: Female

DRUGS (1)
  1. OCREVUS [Suspect]
     Active Substance: OCRELIZUMAB
     Indication: Relapsing-remitting multiple sclerosis
     Dosage: MORE DOSAGE INFORMATION IS 300 MG AT DAY 0 AND 14, THEN 600 MG EVERY 6 MONTHS?FREQUENCY IN 5 MONTHS
     Route: 042
     Dates: start: 20181109

REACTIONS (3)
  - T-lymphocyte count abnormal [Unknown]
  - B-lymphocyte count abnormal [Unknown]
  - Lymphadenopathy [Unknown]
